FAERS Safety Report 6019572-9 (Version None)
Quarter: 2008Q4

REPORT INFORMATION
  Report Type: 
  Country: None (occurrence: None)
  Receive Date: 20081224
  Receipt Date: 20081215
  Transmission Date: 20090506
  Serious: Yes (Other)
  Sender: FDA-Public Use
  Company Number: PHHY2008DE32254

PATIENT
  Sex: Male

DRUGS (4)
  1. LEPONEX [Suspect]
     Dosage: 600 MG/DAY
     Route: 048
     Dates: start: 19890101
  2. LEPONEX [Suspect]
     Dosage: 800 MG/DAY
     Route: 048
  3. EUTHYROX [Concomitant]
  4. BISOPROLOL FUMARATE [Concomitant]

REACTIONS (3)
  - METASTASES TO LUNG [None]
  - RENAL CELL CARCINOMA [None]
  - SURGERY [None]
